FAERS Safety Report 9542502 (Version 1)
Quarter: 2013Q3

REPORT INFORMATION
  Report Type: Spontaneous
  Country: AU (occurrence: AU)
  Receive Date: 20130923
  Receipt Date: 20130923
  Transmission Date: 20140515
  Serious: Yes (Other)
  Sender: FDA-Public Use
  Company Number: PHHY2013AU105433

PATIENT
  Age: 49 Year
  Sex: Male

DRUGS (3)
  1. FAMCICLOVIR [Suspect]
     Dosage: UNK UKN, UNK
  2. CETIRIZINE HYDROCHLORIDE [Concomitant]
     Dosage: UNK UKN, UNK
  3. FLUVOXAMINE MALEATE [Concomitant]
     Dosage: UNK UKN, UNK

REACTIONS (5)
  - Psychomotor hyperactivity [Unknown]
  - Memory impairment [Unknown]
  - Aggression [Unknown]
  - Agitation [Unknown]
  - Disturbance in attention [Unknown]
